FAERS Safety Report 6701418-4 (Version None)
Quarter: 2010Q2

REPORT INFORMATION
  Report Type: 
  Country: None (occurrence: None)
  Receive Date: 20100429
  Receipt Date: 20100416
  Transmission Date: 20101027
  Serious: Yes (Hospitalization)
  Sender: FDA-Public Use
  Company Number: JP-RANBAXY-2010RR-33329

PATIENT
  Age: 17 Year
  Sex: Male

DRUGS (3)
  1. AMOXICILLIN [Suspect]
     Dosage: UNK
  2. CARBAMAZEPINE [Suspect]
     Dosage: UNK
  3. ZONISAMIDE [Suspect]
     Dosage: UNK
     Dates: start: 20070501

REACTIONS (2)
  - DRUG RASH WITH EOSINOPHILIA AND SYSTEMIC SYMPTOMS [None]
  - TOXIC EPIDERMAL NECROLYSIS [None]
